FAERS Safety Report 14633702 (Version 1)
Quarter: 2018Q1

REPORT INFORMATION
  Report Type: Report from Study
  Country: CO (occurrence: CO)
  Receive Date: 20180314
  Receipt Date: 20180314
  Transmission Date: 20180509
  Serious: Yes (Hospitalization)
  Sender: FDA-Public Use
  Company Number: CO-UCBSA-2018010023

PATIENT
  Age: 9 Year
  Sex: Male

DRUGS (4)
  1. LACOSAMIDE. [Suspect]
     Active Substance: LACOSAMIDE
     Indication: EPILEPSY
     Dosage: 200 MG, 2X/DAY (BID)
     Route: 048
     Dates: start: 20110701
  2. CLONAZEPAM. [Concomitant]
     Active Substance: CLONAZEPAM
     Indication: EPILEPSY
     Dosage: 5CC, 3X/DAY (TID)
     Route: 048
     Dates: start: 20110701
  3. VALCOTE [Concomitant]
     Active Substance: VALPROATE SODIUM
     Indication: EPILEPSY
     Dosage: 250 MG, 3X/DAY (TID)
     Route: 048
     Dates: start: 20110701
  4. CARBAMAZEPINE. [Concomitant]
     Active Substance: CARBAMAZEPINE
     Indication: EPILEPSY
     Dosage: 600 MG, 3X/DAY (TID)
     Route: 048
     Dates: start: 20110701

REACTIONS (3)
  - Off label use [Unknown]
  - Headache [Recovered/Resolved]
  - Seizure [Recovered/Resolved]

NARRATIVE: CASE EVENT DATE: 20110701
